FAERS Safety Report 5584317-3 (Version None)
Quarter: 2008Q1

REPORT INFORMATION
  Report Type: 
  Country: None (occurrence: None)
  Receive Date: 20080108
  Receipt Date: 20080103
  Transmission Date: 20080703
  Serious: Yes (Disabling)
  Sender: FDA-Public Use
  Company Number: FR-ASTRAZENECA-2007CG01693

PATIENT
  Age: 588 Month
  Sex: Female
  Weight: 52 kg

DRUGS (2)
  1. NOLVADEX [Suspect]
     Indication: BREAST CANCER FEMALE
     Route: 048
     Dates: start: 20070130, end: 20070101
  2. TAMOXIFEN [Suspect]
     Indication: BREAST CANCER FEMALE
     Route: 048
     Dates: start: 20070101, end: 20071201

REACTIONS (2)
  - VISUAL ACUITY REDUCED [None]
  - VISUAL FIELD DEFECT [None]
